FAERS Safety Report 14995185 (Version 1)
Quarter: 2018Q2

REPORT INFORMATION
  Report Type: Report from Study
  Country: US (occurrence: US)
  Receive Date: 20180611
  Receipt Date: 20180611
  Transmission Date: 20180711
  Serious: Yes (Other)
  Sender: FDA-Public Use
  Company Number: US-UCBSA-2018025010

PATIENT

DRUGS (1)
  1. LEVETIRACETAM. [Suspect]
     Active Substance: LEVETIRACETAM
     Indication: SEIZURE
     Dosage: REDUCING THE DOSE BY 250 MG EVERY TWO WEEKS

REACTIONS (5)
  - Anger [Unknown]
  - Simple partial seizures [Not Recovered/Not Resolved]
  - Anxiety [Unknown]
  - Frustration tolerance decreased [Unknown]
  - Disturbance in attention [Unknown]
